FAERS Safety Report 6408536-9 (Version None)
Quarter: 2009Q4

REPORT INFORMATION
  Report Type: 
  Country: None (occurrence: None)
  Receive Date: 20091021
  Receipt Date: 20090922
  Transmission Date: 20100525
  Serious: No
  Sender: FDA-Public Use
  Company Number: US-BAYER-200914797BCC

PATIENT
  Age: 86 Year
  Sex: Male
  Weight: 79 kg

DRUGS (7)
  1. ALEVE [Suspect]
     Indication: DIABETES MELLITUS
     Dosage: UNIT DOSE: 220 MG
     Route: 048
     Dates: start: 20090922
  2. AVANDIA [Concomitant]
     Route: 065
  3. METFORMIN HCL [Concomitant]
     Route: 065
  4. CLONAZEPAM [Concomitant]
     Route: 065
  5. PROPRANOLOL [Concomitant]
     Route: 065
  6. ASPIRIN [Concomitant]
  7. LOVASTATIN [Concomitant]
     Route: 065

REACTIONS (1)
  - ABDOMINAL DISCOMFORT [None]
